FAERS Safety Report 22729013 (Version 3)
Quarter: 2024Q2

REPORT INFORMATION
  Report Type: Spontaneous
  Country: CA (occurrence: CA)
  Receive Date: 20230720
  Receipt Date: 20240419
  Transmission Date: 20240716
  Serious: Yes (Other)
  Sender: FDA-Public Use
  Company Number: CA-HIKMA PHARMACEUTICALS USA INC.-CA-H14001-23-63316

PATIENT

DRUGS (7)
  1. BIMATOPROST [Suspect]
     Active Substance: BIMATOPROST
     Indication: Open angle glaucoma
     Dosage: UNK
     Route: 061
  2. FUROSEMIDE [Suspect]
     Active Substance: FUROSEMIDE
     Indication: Open angle glaucoma
     Dosage: UNK
     Route: 065
  3. BIMATOPROST [Suspect]
     Active Substance: BIMATOPROST
     Indication: Open angle glaucoma
     Dosage: UNK
     Route: 047
  4. ASPIRIN [Concomitant]
     Active Substance: ASPIRIN
     Indication: Product used for unknown indication
     Dosage: UNK
     Route: 065
  5. LEVOTHYROXINE [Concomitant]
     Active Substance: LEVOTHYROXINE\LEVOTHYROXINE SODIUM
     Indication: Product used for unknown indication
     Dosage: UNK
     Route: 065
  6. SERC (BETAHISTINE HYDROCHLORIDE) [Concomitant]
     Active Substance: BETAHISTINE HYDROCHLORIDE
     Indication: Product used for unknown indication
     Dosage: UNK
     Route: 065
  7. THIORIDAZINE [Concomitant]
     Active Substance: THIORIDAZINE
     Indication: Product used for unknown indication
     Dosage: UNK
     Route: 065

REACTIONS (12)
  - Blepharal pigmentation [Unknown]
  - Dermatochalasis [Unknown]
  - Eye irritation [Recovered/Resolved]
  - Hypertrichosis [Unknown]
  - Lentigo maligna [Recovered/Resolved]
  - Lid sulcus deepened [Unknown]
  - Malignant melanoma [Unknown]
  - Pigmentation disorder [Unknown]
  - Prostaglandin analogue periorbitopathy [Unknown]
  - Skin discolouration [Unknown]
  - Skin lesion [Unknown]
  - Skin hyperpigmentation [Unknown]
